FAERS Safety Report 24360146 (Version 1)
Quarter: 2024Q3

REPORT INFORMATION
  Report Type: Spontaneous
  Country: CN (occurrence: CN)
  Receive Date: 20240925
  Receipt Date: 20240925
  Transmission Date: 20241017
  Serious: Yes (Life-Threatening)
  Sender: ACCORD
  Company Number: None

PATIENT
  Age: 46 Year
  Sex: Female

DRUGS (4)
  1. PACLITAXEL [Suspect]
     Active Substance: PACLITAXEL
     Indication: Breast neoplasm
     Dosage: 190 MILLIGRAM, WEEKLY
     Dates: start: 20240806, end: 20240813
  2. TRASTUZUMAB [Suspect]
     Active Substance: TRASTUZUMAB
     Indication: Breast neoplasm
     Dosage: 420 MILLIGRAM, QD
     Dates: start: 20240806, end: 20240806
  3. CARBOPLATIN [Suspect]
     Active Substance: CARBOPLATIN
     Indication: Breast neoplasm
     Dosage: 570 MILLIGRAM, QD
     Dates: start: 20240806, end: 20240806
  4. PYROTINIB [Suspect]
     Active Substance: PYROTINIB
     Indication: Breast neoplasm
     Dosage: 320 MILLIGRAM, QD,
     Route: 048
     Dates: start: 20240806

REACTIONS (1)
  - Granulocyte count decreased [Recovered/Resolved]

NARRATIVE: CASE EVENT DATE: 20240826
